FAERS Safety Report 10079597 (Version 1)
Quarter: 2014Q2

REPORT INFORMATION
  Report Type: Spontaneous
  Country: None (occurrence: None)
  Receive Date: 20140414
  Receipt Date: 20140414
  Transmission Date: 20141212
  Serious: Yes (Hospitalization)
  Sender: FDA-Public Use
  Company Number: None

PATIENT
  Age: 37 Year
  Sex: Male
  Weight: 68.04 kg

DRUGS (1)
  1. HALDOL [Suspect]
     Dosage: INTO A VEIN
     Dates: start: 20140409, end: 20140409

REACTIONS (4)
  - Dyspnoea [None]
  - Throat tightness [None]
  - Muscle spasms [None]
  - Dystonia [None]
